FAERS Safety Report 24070849 (Version 1)
Quarter: 2024Q3

REPORT INFORMATION
  Report Type: Report from Study
  Country: IN (occurrence: IN)
  Receive Date: 20240710
  Receipt Date: 20240710
  Transmission Date: 20241017
  Serious: No
  Sender: ROCHE
  Company Number: IN-ROCHE-3515827

PATIENT

DRUGS (3)
  1. PHESGO [Suspect]
     Active Substance: HYALURONIDASE-ZZXF\PERTUZUMAB\TRASTUZUMAB
     Indication: Product used for unknown indication
     Route: 065
  2. PACLITAXEL [Concomitant]
     Active Substance: PACLITAXEL
     Route: 042
  3. LORAZEPAM [Concomitant]
     Active Substance: LORAZEPAM

REACTIONS (2)
  - Arthralgia [Unknown]
  - Bone pain [Unknown]
